FAERS Safety Report 15670008 (Version 1)
Quarter: 2018Q4

REPORT INFORMATION
  Report Type: Spontaneous
  Country: US (occurrence: US)
  Receive Date: 20181129
  Receipt Date: 20181129
  Transmission Date: 20190205
  Serious: Yes (Other)
  Sender: FDA-Public Use
  Company Number: US-TEVA-2018-US-980586

PATIENT
  Age: 52 Year
  Sex: Male

DRUGS (7)
  1. MAGNESIUM SULFATE (MGSO4) [Suspect]
     Active Substance: MAGNESIUM SULFATE
     Indication: CHEMICAL POISONING
     Route: 065
  2. CALCIUM CHLORIDE (CACL2) [Suspect]
     Active Substance: CALCIUM CHLORIDE
     Indication: CHEMICAL POISONING
     Route: 042
  3. CALCIUM CHLORIDE (CACL2) [Suspect]
     Active Substance: CALCIUM CHLORIDE
     Indication: CHEMICAL POISONING
     Dosage: OVER 20MIN
     Route: 042
  4. EPINEPHRINE. [Suspect]
     Active Substance: EPINEPHRINE
     Indication: CHEMICAL POISONING
     Route: 065
  5. AMIODARONE [Suspect]
     Active Substance: AMIODARONE
     Indication: CHEMICAL POISONING
     Route: 065
  6. CALCIUM CHLORIDE (CACL2) [Suspect]
     Active Substance: CALCIUM CHLORIDE
     Indication: CHEMICAL POISONING
     Dosage: TOTAL OF 10-12G OF CALCIUM CHLORIDE
     Route: 042
  7. SODIUM BICARBONATE. [Suspect]
     Active Substance: SODIUM BICARBONATE
     Indication: CHEMICAL POISONING
     Route: 065

REACTIONS (1)
  - Drug ineffective [Unknown]
